FAERS Safety Report 9275218 (Version 1)
Quarter: 2013Q2

REPORT INFORMATION
  Report Type: Spontaneous
  Country: US (occurrence: None)
  Receive Date: 20130430
  Receipt Date: 20130430
  Transmission Date: 20140414
  Serious: Yes (Hospitalization)
  Sender: FDA-Public Use
  Company Number: US-SEPTODONT-201301038

PATIENT
  Age: 44 Year
  Sex: Female

DRUGS (2)
  1. CARBOCAINE [Suspect]
     Indication: LOCAL ANAESTHESIA
     Dosage: 1 DF TOAL DENTAL
     Route: 004
     Dates: start: 20130304
  2. BENZOCAINE [Concomitant]

REACTIONS (2)
  - Hypersensitivity [None]
  - Anxiety [None]
